FAERS Safety Report 16850667 (Version 1)
Quarter: 2019Q3

REPORT INFORMATION
  Report Type: Spontaneous
  Country: US (occurrence: US)
  Receive Date: 20190925
  Receipt Date: 20190925
  Transmission Date: 20191005
  Serious: Yes (Other)
  Sender: FDA-Public Use
  Company Number: US-THERAPEUTICSMD-2019TMD02628

PATIENT
  Age: 57 Year
  Sex: Female
  Weight: 70.3 kg

DRUGS (3)
  1. UNSPECIFIED VITAMINS [Concomitant]
     Active Substance: VITAMINS
     Dosage: DAILY
  2. IMVEXXY [Suspect]
     Active Substance: ESTRADIOL
     Indication: VULVOVAGINAL DRYNESS
     Dosage: 4 ?G, 1X/DAY IN THE MORNING
     Route: 067
     Dates: start: 2019, end: 201907
  3. IMVEXXY [Suspect]
     Active Substance: ESTRADIOL
     Dosage: 4 ?G, 2X/WEEK IN THE MORNING
     Route: 067
     Dates: start: 201907, end: 201907

REACTIONS (4)
  - Cerebrovascular accident [Not Recovered/Not Resolved]
  - Blindness unilateral [Not Recovered/Not Resolved]
  - Drug ineffective for unapproved indication [Recovered/Resolved]
  - Visual field defect [Not Recovered/Not Resolved]

NARRATIVE: CASE EVENT DATE: 2019
